FAERS Safety Report 5660501-5 (Version None)
Quarter: 2008Q1

REPORT INFORMATION
  Report Type: 
  Country: None (occurrence: None)
  Receive Date: 20080306
  Receipt Date: 20080222
  Transmission Date: 20080703
  Serious: Yes (Hospitalization, Disabling, Other)
  Sender: FDA-Public Use
  Company Number: A-CH2008-19595

PATIENT
  Age: 41 Year
  Sex: Male
  Weight: 80 kg

DRUGS (2)
  1. TRACLEER [Suspect]
     Indication: SKIN ULCER
     Dosage: 125 MG, BID, ORAL; 125 MG, BID, ORAL
     Route: 048
     Dates: start: 20070801, end: 20070801
  2. TRACLEER [Suspect]
     Indication: SKIN ULCER
     Dosage: 125 MG, BID, ORAL; 125 MG, BID, ORAL
     Route: 048
     Dates: start: 20070901, end: 20070901

REACTIONS (2)
  - LARYNGITIS [None]
  - OFF LABEL USE [None]
